FAERS Safety Report 6078192-0 (Version None)
Quarter: 2009Q1

REPORT INFORMATION
  Report Type: 
  Country: None (occurrence: None)
  Receive Date: 20090213
  Receipt Date: 20090204
  Transmission Date: 20090719
  Serious: Yes (Other)
  Sender: FDA-Public Use
  Company Number: PHHY2009JP04188

PATIENT
  Age: 71 Year
  Sex: Female

DRUGS (2)
  1. ZOMETA [Suspect]
     Indication: METASTASES TO BONE
     Dosage: UNK
     Route: 042
     Dates: start: 20060801, end: 20080401
  2. AREDIA [Suspect]
     Indication: METASTASES TO BONE
     Dosage: UNK
     Route: 042
     Dates: end: 20060801

REACTIONS (3)
  - MALIGNANT NEOPLASM PROGRESSION [None]
  - OSTEITIS [None]
  - PLEURAL EFFUSION [None]
